FAERS Safety Report 4488800-3 (Version None)
Quarter: 2004Q4

REPORT INFORMATION
  Report Type: 
  Country: None (occurrence: None)
  Receive Date: 20041029
  Receipt Date: 20040827
  Transmission Date: 20050328
  Serious: Yes (Hospitalization)
  Sender: FDA-Public Use
  Company Number: US-MERCK-0408USA02227

PATIENT
  Age: 54 Year
  Sex: Female

DRUGS (3)
  1. SINGULAIR [Suspect]
     Indication: ASTHMA
     Route: 048
     Dates: start: 20010201, end: 20040101
  2. PREDNISONE [Concomitant]
     Route: 065
  3. ALBUTEROL [Concomitant]
     Route: 055

REACTIONS (2)
  - ALLERGIC GRANULOMATOUS ANGIITIS [None]
  - LUNG INFILTRATION [None]
